FAERS Safety Report 5369652-6 (Version None)
Quarter: 2007Q2

REPORT INFORMATION
  Report Type: 
  Country: None (occurrence: None)
  Receive Date: 20070625
  Receipt Date: 20070613
  Transmission Date: 20071010
  Serious: Yes (Hospitalization)
  Sender: FDA-Public Use
  Company Number: DE-PFIZER INC-2007043548

PATIENT
  Sex: Female
  Weight: 58.7 kg

DRUGS (8)
  1. SU-011,248 [Suspect]
     Indication: METASTATIC GASTRIC CANCER
     Dosage: DAILY DOSE:50MG
     Route: 048
     Dates: start: 20070425, end: 20070523
  2. NOVALGIN [Concomitant]
     Indication: PAIN
     Dosage: TEXT:4X30 DROPS/DAY
     Route: 048
  3. NOVALGIN [Concomitant]
     Indication: PYREXIA
  4. METOCLOPRAMIDE HYDROCHLORIDE [Concomitant]
     Indication: NAUSEA
     Dosage: TEXT:4X30 DROPS/DAY
     Route: 048
  5. TPN ELECTROLYTES IN PLASTIC CONTAINER [Concomitant]
     Indication: PARENTERAL NUTRITION
     Dosage: TEXT:1000ML/DAY
     Route: 042
  6. FURORESE [Concomitant]
     Indication: OEDEMA
     Dosage: TEXT:1X40MG/DAY
     Route: 048
  7. FURORESE [Concomitant]
     Indication: ASCITES
  8. SPIRONOLACTONE [Concomitant]
     Indication: ASCITES

REACTIONS (3)
  - CHILLS [None]
  - PYREXIA [None]
  - UROSEPSIS [None]
